FAERS Safety Report 10331121 (Version 1)
Quarter: 2014Q3

REPORT INFORMATION
  Report Type: Report from Study
  Country: US (occurrence: None)
  Receive Date: 20140718
  Receipt Date: 20140718
  Transmission Date: 20150326
  Serious: Yes (Hospitalization)
  Sender: FDA-Public Use
  Company Number: 2014UCU075000210

PATIENT
  Age: 35 Year
  Sex: Female
  Weight: 63.59 kg

DRUGS (13)
  1. GATTEX [Concomitant]
     Active Substance: TEDUGLUTIDE\WATER
  2. METRONIDAZOLE. [Concomitant]
     Active Substance: METRONIDAZOLE
  3. PREDNISONE. [Concomitant]
     Active Substance: PREDNISONE
  4. INFLIXIMAB [Concomitant]
     Active Substance: INFLIXIMAB
  5. NORETHISTERONE [Concomitant]
     Active Substance: NORETHINDRONE
  6. BALSALAZIDE [Concomitant]
     Active Substance: BALSALAZIDE
  7. CIPROFLOXACIN. [Concomitant]
     Active Substance: CIPROFLOXACIN
  8. ADALIMUMAB [Concomitant]
     Active Substance: ADALIMUMAB
  9. CIMZIA [Suspect]
     Active Substance: CERTOLIZUMAB PEGOL
     Indication: CROHN^S DISEASE
     Dates: start: 20100727
  10. SULFASALAZINE. [Concomitant]
     Active Substance: SULFASALAZINE
  11. METHOTREXATE [Suspect]
     Active Substance: METHOTREXATE
     Dates: start: 20120910
  12. MESALAMINE. [Concomitant]
     Active Substance: MESALAMINE
  13. AZATHIOPRINE. [Concomitant]
     Active Substance: AZATHIOPRINE

REACTIONS (1)
  - Stomatitis [None]

NARRATIVE: CASE EVENT DATE: 20140606
